FAERS Safety Report 14225867 (Version 2)
Quarter: 2017Q4

REPORT INFORMATION
  Report Type: Report from Study
  Country: US (occurrence: US)
  Receive Date: 20171127
  Receipt Date: 20171218
  Transmission Date: 20180321
  Serious: No
  Sender: FDA-Public Use
  Company Number: US-JNJFOC-20171126639

PATIENT
  Age: 58 Year
  Sex: Male

DRUGS (10)
  1. IMBRUVICA [Suspect]
     Active Substance: IBRUTINIB
     Indication: WALDENSTROM^S MACROGLOBULINAEMIA
     Route: 048
     Dates: start: 20170919
  2. VENTOLIN [Concomitant]
     Active Substance: ALBUTEROL SULFATE
  3. LASIX [Concomitant]
     Active Substance: FUROSEMIDE
  4. MULTIVITAMINS [Concomitant]
     Active Substance: VITAMINS
  5. IRON [Concomitant]
     Active Substance: IRON
  6. MYCOSTATIN [Concomitant]
     Active Substance: NYSTATIN
  7. DIAMOX SEQUELS [Concomitant]
     Active Substance: ACETAZOLAMIDE
  8. SYMBICORT [Concomitant]
     Active Substance: BUDESONIDE\FORMOTEROL FUMARATE DIHYDRATE
  9. NORCO [Concomitant]
     Active Substance: ACETAMINOPHEN\HYDROCODONE BITARTRATE
  10. ZOFRAN [Concomitant]
     Active Substance: ONDANSETRON HYDROCHLORIDE

REACTIONS (5)
  - Blood immunoglobulin M decreased [Unknown]
  - Oropharyngeal pain [Unknown]
  - Pneumonia [Unknown]
  - Immunodeficiency [Unknown]
  - Myalgia [Unknown]

NARRATIVE: CASE EVENT DATE: 20171124
